FAERS Safety Report 14141243 (Version 2)
Quarter: 2017Q4

REPORT INFORMATION
  Report Type: Report from Study
  Country: US (occurrence: US)
  Receive Date: 20171030
  Receipt Date: 20171227
  Transmission Date: 20180321
  Serious: Yes (Hospitalization)
  Sender: FDA-Public Use
  Company Number: US-PFIZER INC-2017463036

PATIENT
  Age: 45 Year
  Sex: Female

DRUGS (2)
  1. IBRANCE [Suspect]
     Active Substance: PALBOCICLIB
     Dosage: 75 MG, DAILY
     Route: 048
     Dates: end: 20171210
  2. IBRANCE [Suspect]
     Active Substance: PALBOCICLIB
     Indication: BREAST CANCER
     Dosage: 125 MG, DAILY
     Route: 048
     Dates: start: 20171015

REACTIONS (4)
  - Intestinal obstruction [Unknown]
  - Pulmonary oedema [Unknown]
  - Increased tendency to bruise [Unknown]
  - Pneumonia [Unknown]

NARRATIVE: CASE EVENT DATE: 2017
